FAERS Safety Report 9098135 (Version 1)
Quarter: 2013Q1

REPORT INFORMATION
  Report Type: Spontaneous
  Country: GB (occurrence: GB)
  Receive Date: 20130213
  Receipt Date: 20130213
  Transmission Date: 20140127
  Serious: Yes (Death)
  Sender: FDA-Public Use
  Company Number: GB-CELGENEUS-167-21880-13021148

PATIENT
  Age: 72 Year
  Sex: Female
  Weight: 72 kg

DRUGS (5)
  1. REVLIMID [Suspect]
     Indication: PLASMA CELL MYELOMA
     Dosage: 25 MILLIGRAM
     Route: 048
     Dates: start: 20121016, end: 20130130
  2. ELOTUZUMAB [Suspect]
     Indication: PLASMA CELL MYELOMA
     Dosage: 725 MILLIGRAM
     Route: 041
     Dates: start: 20121016, end: 20130124
  3. DEXAMETHASONE [Suspect]
     Indication: PLASMA CELL MYELOMA
     Dosage: 40 MILLIEQUIVALENTS
     Route: 048
     Dates: start: 20121016, end: 20130124
  4. DEXAMETHASONE [Suspect]
     Dosage: 8 MILLIGRAM
     Route: 041
     Dates: start: 20121016, end: 20130124
  5. DOXYCYCLINE [Concomitant]
     Indication: RESPIRATORY TRACT INFECTION
     Route: 065

REACTIONS (1)
  - Death [Fatal]
